FAERS Safety Report 4735558-6 (Version None)
Quarter: 2005Q3

REPORT INFORMATION
  Report Type: 
  Country: None (occurrence: None)
  Receive Date: 20050803
  Receipt Date: 20050727
  Transmission Date: 20060218
  Serious: Yes (Hospitalization)
  Sender: FDA-Public Use
  Company Number: TPA2005A00843

PATIENT
  Age: 75 Year
  Sex: Female
  Weight: 99.3377 kg

DRUGS (6)
  1. ACTOS [Suspect]
     Indication: DIABETES MELLITUS NON-INSULIN-DEPENDENT
     Dosage: 15 MG, 1 IN 1 D, PER ORAL
     Route: 048
     Dates: start: 20040101, end: 20050701
  2. GLUCOPHAGE [Concomitant]
  3. LORTAB [Concomitant]
  4. HUMULIN 70/30 (HUMULIN 70/30) (INJECTION) [Concomitant]
  5. CARAFATE [Concomitant]
  6. PREVACID [Concomitant]

REACTIONS (2)
  - LYMPHOMA [None]
  - SHOULDER OPERATION [None]
